FAERS Safety Report 17196031 (Version 1)
Quarter: 2019Q4

REPORT INFORMATION
  Report Type: Spontaneous
  Country: US (occurrence: US)
  Receive Date: 20191224
  Receipt Date: 20191224
  Transmission Date: 20200122
  Serious: Yes (Other)
  Sender: FDA-Public Use
  Company Number: US-BAYER-2019-232516

PATIENT
  Age: 72 Year
  Sex: Female

DRUGS (1)
  1. COPANLISIB. [Suspect]
     Active Substance: COPANLISIB

REACTIONS (1)
  - Disease progression [None]
